FAERS Safety Report 11206943 (Version 1)
Quarter: 2015Q2

REPORT INFORMATION
  Report Type: Report from Study
  Country: US (occurrence: US)
  Receive Date: 20150622
  Receipt Date: 20150622
  Transmission Date: 20150821
  Serious: No
  Sender: FDA-Public Use
  Company Number: US-ABBVIE-15P-163-1381403-00

PATIENT
  Sex: Male

DRUGS (1)
  1. VIEKIRA PAK [Suspect]
     Active Substance: DASABUVIR\OMBITASVIR\PARITAPREVIR\RITONAVIR
     Indication: PRODUCT USED FOR UNKNOWN INDICATION
     Dosage: THE PATIENT IS ON THE 12 WEEK REGIMEN
     Route: 048
     Dates: start: 20150407

REACTIONS (2)
  - Anger [Not Recovered/Not Resolved]
  - Mood swings [Not Recovered/Not Resolved]
